FAERS Safety Report 9031602 (Version 2)
Quarter: 2013Q2

REPORT INFORMATION
  Report Type: Report from Study
  Country: CN (occurrence: CN)
  Receive Date: 20130124
  Receipt Date: 20130424
  Transmission Date: 20140414
  Serious: Yes (Other)
  Sender: FDA-Public Use
  Company Number: CN-ROCHE-1183456

PATIENT
  Age: 52 Year
  Sex: Female

DRUGS (4)
  1. PEG-INTERFERON ALFA 2A [Suspect]
     Indication: HEPATITIS C
     Route: 058
     Dates: start: 20121123, end: 201301
  2. PEG-INTERFERON ALFA 2A [Suspect]
     Route: 058
     Dates: start: 201301, end: 201303
  3. PEG-INTERFERON ALFA 2A [Suspect]
     Route: 058
     Dates: start: 201303, end: 201304
  4. RIBAVIRIN [Concomitant]
     Route: 048
     Dates: start: 20121123, end: 201304

REACTIONS (3)
  - Neutrophil count decreased [Unknown]
  - White blood cell count decreased [Unknown]
  - Platelet count decreased [Unknown]
